FAERS Safety Report 12655931 (Version 2)
Quarter: 2016Q3

REPORT INFORMATION
  Report Type: Spontaneous
  Country: US (occurrence: US)
  Receive Date: 20160816
  Receipt Date: 20160907
  Transmission Date: 20161109
  Serious: No
  Sender: FDA-Public Use
  Company Number: US-PFIZER INC-2016387099

PATIENT
  Age: 73 Year
  Sex: Female

DRUGS (2)
  1. ULTRACET [Concomitant]
     Active Substance: ACETAMINOPHEN\TRAMADOL HYDROCHLORIDE
     Dosage: UNK
     Dates: start: 2009
  2. CELEBREX [Suspect]
     Active Substance: CELECOXIB
     Indication: OSTEOARTHRITIS
     Dosage: 200 MG, DAILY (200 MG ONE CAPSULE DAILY)
     Dates: start: 1999

REACTIONS (8)
  - Drug dose omission [Unknown]
  - Joint injury [Unknown]
  - Limb injury [Unknown]
  - Cardiac disorder [Unknown]
  - Arthralgia [Recovering/Resolving]
  - Dyspnoea [Unknown]
  - Road traffic accident [Unknown]
  - Back injury [Unknown]

NARRATIVE: CASE EVENT DATE: 201602
